FAERS Safety Report 6427475-0 (Version None)
Quarter: 2009Q4

REPORT INFORMATION
  Report Type: 
  Country: None (occurrence: None)
  Receive Date: 20091104
  Receipt Date: 20091022
  Transmission Date: 20100525
  Serious: Yes (Hospitalization, Other)
  Sender: FDA-Public Use
  Company Number: PHHY2008ZA33976

PATIENT
  Sex: Female

DRUGS (6)
  1. GLEEVEC [Suspect]
     Dosage: 400 MG, QD
     Dates: start: 20051011, end: 20070501
  2. GLEEVEC [Suspect]
     Dosage: 600 MG, QD
     Dates: start: 20070501, end: 20080701
  3. GLEEVEC [Suspect]
     Dosage: 800 MG QD
     Dates: start: 20080701
  4. PIPERACILLIN AND TAZOBACTAM [Concomitant]
  5. AMIKACIN [Concomitant]
  6. FOLATE SODIUM [Concomitant]
     Dosage: 5 MG, QD

REACTIONS (16)
  - ACUTE MEGAKARYOCYTIC LEUKAEMIA [None]
  - ACUTE MYELOID LEUKAEMIA [None]
  - BLAST CRISIS IN MYELOGENOUS LEUKAEMIA [None]
  - BLOOD ALKALINE PHOSPHATASE DECREASED [None]
  - BLOOD LACTATE DEHYDROGENASE INCREASED [None]
  - BLOOD UREA DECREASED [None]
  - BONE PAIN [None]
  - FEBRILE NEUTROPENIA [None]
  - GAMMA-GLUTAMYLTRANSFERASE INCREASED [None]
  - GENE MUTATION IDENTIFICATION TEST POSITIVE [None]
  - HEADACHE [None]
  - LEUKOPENIA [None]
  - MUSCLE SPASMS [None]
  - MUSCULOSKELETAL STIFFNESS [None]
  - MYALGIA [None]
  - PHOTOPHOBIA [None]
